FAERS Safety Report 5373602-6 (Version None)
Quarter: 2007Q2

REPORT INFORMATION
  Report Type: 
  Country: None (occurrence: None)
  Receive Date: 20070628
  Receipt Date: 20070621
  Transmission Date: 20071010
  Serious: Yes (Hospitalization)
  Sender: FDA-Public Use
  Company Number: HQWYE727721JUN07

PATIENT
  Sex: Female

DRUGS (2)
  1. INDERAL [Suspect]
     Indication: REPERFUSION ARRHYTHMIA
     Route: 048
     Dates: start: 20070610, end: 20070617
  2. TAPAZOLE [Suspect]
     Indication: HYPERTHYROIDISM
     Route: 048
     Dates: start: 20070610, end: 20070617

REACTIONS (2)
  - ANGIOEDEMA [None]
  - URTICARIA [None]
